FAERS Safety Report 15774365 (Version 1)
Quarter: 2018Q4

REPORT INFORMATION
  Report Type: Report from Study
  Country: IT (occurrence: IT)
  Receive Date: 20181229
  Receipt Date: 20181229
  Transmission Date: 20190205
  Serious: Yes (Life-Threatening, Hospitalization, Other)
  Sender: FDA-Public Use
  Company Number: IT-INVENTIA-000258

PATIENT
  Age: 70 Year
  Sex: Female

DRUGS (10)
  1. CANDESARTAN/CANDESARTAN CILEXETIL [Concomitant]
  2. CLONIDINE. [Concomitant]
     Active Substance: CLONIDINE
  3. NEBIVOLOL. [Concomitant]
     Active Substance: NEBIVOLOL
  4. METFORMIN [Suspect]
     Active Substance: METFORMIN HYDROCHLORIDE
     Indication: TYPE 2 DIABETES MELLITUS
  5. ACETYLSALICYLIC ACID [Concomitant]
     Active Substance: ASPIRIN
  6. DOXAZOSIN [Concomitant]
     Active Substance: DOXAZOSIN\DOXAZOSIN MESYLATE
  7. ATORVASTATIN [Concomitant]
     Active Substance: ATORVASTATIN
  8. RANITIDINE. [Concomitant]
     Active Substance: RANITIDINE
  9. LERCANIDIPINE [Concomitant]
     Active Substance: LERCANIDIPINE
  10. LINAGLIPTIN [Concomitant]
     Active Substance: LINAGLIPTIN

REACTIONS (4)
  - Lactic acidosis [Unknown]
  - Pneumonia [Unknown]
  - Acute kidney injury [Unknown]
  - Septic shock [Unknown]
